FAERS Safety Report 14834493 (Version 1)
Quarter: 2018Q2

REPORT INFORMATION
  Report Type: Spontaneous
  Country: US (occurrence: US)
  Receive Date: 20180501
  Receipt Date: 20180501
  Transmission Date: 20180711
  Serious: No
  Sender: FDA-Public Use
  Company Number: US-PERRIGO-18US002023

PATIENT
  Sex: Male

DRUGS (2)
  1. AQUAPHOR                           /01675601/ [Concomitant]
     Indication: PSORIASIS
     Dosage: UNK
     Route: 061
     Dates: start: 201711
  2. TRIAMCINOLONE ACETONIDE. [Suspect]
     Active Substance: TRIAMCINOLONE ACETONIDE
     Indication: PSORIASIS
     Dosage: 1 APPLICATION, BID
     Route: 061
     Dates: start: 201711, end: 20180218

REACTIONS (1)
  - Blood glucose increased [Unknown]

NARRATIVE: CASE EVENT DATE: 201802
